FAERS Safety Report 6931523-9 (Version None)
Quarter: 2010Q3

REPORT INFORMATION
  Report Type: 
  Country: None (occurrence: None)
  Receive Date: 20100812
  Receipt Date: 20090722
  Transmission Date: 20110219
  Serious: Yes (Other)
  Sender: FDA-Public Use
  Company Number: 2009SP016646

PATIENT
  Age: 66 Year
  Sex: Female

DRUGS (1)
  1. REMERON [Suspect]
     Indication: PRODUCT USED FOR UNKNOWN INDICATION
     Dosage: PO

REACTIONS (1)
  - AGRANULOCYTOSIS [None]
